FAERS Safety Report 23719300 (Version 1)
Quarter: 2024Q2

REPORT INFORMATION
  Report Type: Spontaneous
  Country: FR (occurrence: FR)
  Receive Date: 20240408
  Receipt Date: 20240408
  Transmission Date: 20240716
  Serious: Yes (Hospitalization)
  Sender: FDA-Public Use
  Company Number: None

PATIENT
  Age: 87 Year
  Sex: Female
  Weight: 69 kg

DRUGS (3)
  1. LIDOCAINE HYDROCHLORIDE [Suspect]
     Active Substance: LIDOCAINE HYDROCHLORIDE
     Indication: Local anaesthesia
     Dosage: ROUTE OF ADMIN: SUBCUTANEOUS USE
     Dates: end: 20240205
  2. REMIFENTANIL [Suspect]
     Active Substance: REMIFENTANIL
     Indication: Antibiotic prophylaxis
     Dosage: DE 13H37 ? 13H59?ROA : INTRAVENOUS USE
     Dates: end: 20240205
  3. AUGMENTIN [Suspect]
     Active Substance: AMOXICILLIN\CLAVULANATE POTASSIUM
     Indication: Antibiotic prophylaxis
     Dosage: 7G IVL?ROA: INTRAVENOUS
     Dates: end: 20240205

REACTIONS (2)
  - Anaphylactic shock [Recovered/Resolved]
  - Rash [Unknown]

NARRATIVE: CASE EVENT DATE: 20240201
